FAERS Safety Report 11087596 (Version 1)
Quarter: 2015Q2

REPORT INFORMATION
  Report Type: Spontaneous
  Country: US (occurrence: None)
  Receive Date: 20150501
  Receipt Date: 20150501
  Transmission Date: 20150821
  Serious: Yes (Other)
  Sender: FDA-Public Use
  Company Number: None

PATIENT
  Age: 26 Year
  Sex: Female

DRUGS (1)
  1. MIRENA [Suspect]
     Active Substance: LEVONORGESTREL

REACTIONS (8)
  - Complication of device insertion [None]
  - Rectal perforation [None]
  - Device breakage [None]
  - Muscle strain [None]
  - Device dislocation [None]
  - Proctalgia [None]
  - Vaginal perforation [None]
  - Device ineffective [None]

NARRATIVE: CASE EVENT DATE: 20141112
